FAERS Safety Report 7076492-9 (Version None)
Quarter: 2010Q4

REPORT INFORMATION
  Report Type: 
  Country: None (occurrence: None)
  Receive Date: 20101101
  Receipt Date: 20101029
  Transmission Date: 20110411
  Serious: Yes (Death, Hospitalization)
  Sender: FDA-Public Use
  Company Number: MX-B.I. PHARMACEUTICALS,INC./RIDGEFIELD-2010-MX-00298MX

PATIENT
  Sex: Female

DRUGS (3)
  1. SPIRIVA [Suspect]
     Indication: CHRONIC OBSTRUCTIVE PULMONARY DISEASE
     Dosage: ONE CAPSULE DAILY
     Route: 055
     Dates: start: 20100801, end: 20100826
  2. PLAGOCNIL [Concomitant]
     Indication: ARTHRITIS
     Route: 048
  3. ARAVA [Concomitant]
     Indication: ARTHRITIS
     Route: 048

REACTIONS (1)
  - RESPIRATORY FAILURE [None]
